FAERS Safety Report 6604448-6 (Version None)
Quarter: 2010Q1

REPORT INFORMATION
  Report Type: 
  Country: None (occurrence: None)
  Receive Date: 20100226
  Receipt Date: 20091014
  Transmission Date: 20100710
  Serious: No
  Sender: FDA-Public Use
  Company Number: A0811811A

PATIENT
  Age: 25 Year
  Sex: Female

DRUGS (1)
  1. LAMICTAL CD [Suspect]
     Dosage: 100MG PER DAY
     Route: 048
     Dates: start: 20090914

REACTIONS (3)
  - DRY MOUTH [None]
  - INSOMNIA [None]
  - POLLAKIURIA [None]
